FAERS Safety Report 5401230-2 (Version None)
Quarter: 2007Q3

REPORT INFORMATION
  Report Type: 
  Country: None (occurrence: None)
  Receive Date: 20070731
  Receipt Date: 20070725
  Transmission Date: 20080115
  Serious: Yes (Other)
  Sender: FDA-Public Use
  Company Number: FRWYE652715MAY07

PATIENT
  Sex: Female

DRUGS (1)
  1. EFFEXOR XR [Suspect]
     Indication: DEPRESSIVE SYMPTOM
     Route: 048
     Dates: start: 20070509, end: 20070512

REACTIONS (4)
  - ANXIETY [None]
  - DEJA VU [None]
  - DELIRIUM [None]
  - INSOMNIA [None]
